FAERS Safety Report 8781452 (Version 1)
Quarter: 2012Q4

REPORT INFORMATION
  Report Type: 
  Country: AR (occurrence: AR)
  Receive Date: 20120913
  Receipt Date: 20120913
  Transmission Date: 20130627
  Serious: Yes (Hospitalization, Other)
  Sender: FDA-Public Use
  Company Number: PHHY2012AR078606

PATIENT
  Sex: Female

DRUGS (1)
  1. EXFORGE [Suspect]
     Indication: BLOOD PRESSURE ABNORMAL
     Dosage: 1 DF, daily (vals 10 mg/ amlo 160 mg)

REACTIONS (2)
  - Renal artery thrombosis [Recovering/Resolving]
  - Thrombosis [Recovering/Resolving]
